FAERS Safety Report 8859261 (Version 1)
Quarter: 2012Q4

REPORT INFORMATION
  Report Type: 
  Country: US (occurrence: US)
  Receive Date: 20121024
  Receipt Date: 20121024
  Transmission Date: 20130627
  Serious: Yes (Other)
  Sender: FDA-Public Use
  Company Number: US-CELGENEUS-163-21660-12102216

PATIENT

DRUGS (5)
  1. ABRAXANE [Suspect]
     Indication: METASTATIC MELANOMA
     Dosage: 175 milligram/sq. meter
     Route: 065
  2. ABRAXANE [Suspect]
     Dosage: 260 milligram/sq. meter
     Route: 065
  3. OBLIMERSEN [Suspect]
     Indication: METASTATIC MELANOMA
     Dosage: 7 milligram/kilogram
     Route: 041
  4. OBLIMERSEN [Suspect]
     Dosage: 900 Milligram
     Route: 041
  5. TEMOZOLOMIDE [Suspect]
     Indication: METASTATIC MELANOMA
     Dosage: 75 milligram/sq. meter
     Route: 065

REACTIONS (7)
  - Renal failure [Unknown]
  - Hyponatraemia [Unknown]
  - Neutropenia [Unknown]
  - Blood creatinine increased [Unknown]
  - Hypersensitivity [Unknown]
  - Neuropathy peripheral [Unknown]
  - Thrombocytopenia [Unknown]
